FAERS Safety Report 4343842-3 (Version None)
Quarter: 2004Q2

REPORT INFORMATION
  Report Type: 
  Country: None (occurrence: None)
  Receive Date: 20040419
  Receipt Date: 20040405
  Transmission Date: 20050107
  Serious: Yes (Hospitalization)
  Sender: FDA-Public Use
  Company Number: DE-JNJFOC-20040400990

PATIENT
  Age: 47 Year
  Sex: Female

DRUGS (2)
  1. RISPERDAL [Suspect]
     Dosage: 0.5 MG, ORAL
     Route: 048
     Dates: end: 20040329
  2. BENZODIAZEPIN (BENZODIAZEPINE DERIVATIVES) [Concomitant]

REACTIONS (8)
  - BLOOD CREATINE PHOSPHOKINASE INCREASED [None]
  - DIALYSIS [None]
  - MUSCLE DISORDER [None]
  - MUSCULAR WEAKNESS [None]
  - MYOGLOBINURIA [None]
  - OEDEMA [None]
  - RENAL FAILURE ACUTE [None]
  - RENAL INJURY [None]
